FAERS Safety Report 4488747-2 (Version None)
Quarter: 2004Q4

REPORT INFORMATION
  Report Type: 
  Country: None (occurrence: None)
  Receive Date: 20041025
  Receipt Date: 20041011
  Transmission Date: 20050328
  Serious: Yes (Other)
  Sender: FDA-Public Use
  Company Number: 2004076847

PATIENT
  Age: 54 Year
  Sex: Female

DRUGS (3)
  1. NEURONTIN [Suspect]
     Indication: POST-TRAUMATIC EPILEPSY
     Dates: start: 20030101
  2. ZOLOFT [Suspect]
     Indication: DEPRESSION
     Dates: start: 20030101
  3. DANTROLENE SODIUM [Concomitant]

REACTIONS (1)
  - CONVULSION [None]
